FAERS Safety Report 5017623-1 (Version None)
Quarter: 2006Q2

REPORT INFORMATION
  Report Type: 
  Country: None (occurrence: None)
  Receive Date: 20060604
  Receipt Date: 20060525
  Transmission Date: 20061013
  Serious: Yes (Disabling)
  Sender: FDA-Public Use
  Company Number: US-ABBOTT-06P-163-0334843-00

PATIENT
  Sex: Female

DRUGS (2)
  1. DEPAKOTE [Suspect]
     Indication: DRUG USE FOR UNKNOWN INDICATION
  2. NOVOCAINE-ADRENALINE [Concomitant]
     Indication: ANAESTHETIC PREMEDICATION
     Route: 050

REACTIONS (12)
  - ACTIVITIES OF DAILY LIVING IMPAIRED [None]
  - EMOTIONAL DISTRESS [None]
  - EYE SWELLING [None]
  - FACIAL PAIN [None]
  - FACIAL PALSY [None]
  - IMMUNE SYSTEM DISORDER [None]
  - IMPAIRED SELF-CARE [None]
  - MONOPARESIS [None]
  - MOVEMENT DISORDER [None]
  - PAIN IN EXTREMITY [None]
  - STOMACH DISCOMFORT [None]
  - TRANSIENT ISCHAEMIC ATTACK [None]
